FAERS Safety Report 9290580 (Version 2)
Quarter: 2013Q2

REPORT INFORMATION
  Report Type: Spontaneous
  Country: ES (occurrence: ES)
  Receive Date: 20130515
  Receipt Date: 20130603
  Transmission Date: 20140414
  Serious: Yes (Disabling)
  Sender: FDA-Public Use
  Company Number: ES-ELI_LILLY_AND_COMPANY-ES201305002294

PATIENT
  Age: 65 Year
  Sex: Male

DRUGS (4)
  1. CYMBALTA [Suspect]
     Dosage: 30 MG, UNKNOWN
     Dates: start: 201001, end: 2010
  2. CYMBALTA [Suspect]
     Dosage: 60 MG, UNKNOWN
     Dates: start: 2010, end: 201109
  3. CYMBALTA [Suspect]
     Dosage: 30 MG, UNKNOWN
     Dates: start: 201109, end: 201201
  4. CIPRALEX [Concomitant]
     Dosage: 10 MG, QD
     Route: 048

REACTIONS (6)
  - Blepharospasm [Not Recovered/Not Resolved]
  - Blepharitis [Not Recovered/Not Resolved]
  - Photophobia [Not Recovered/Not Resolved]
  - Urticaria pigmentosa [Not Recovered/Not Resolved]
  - Emotional disorder [Unknown]
  - Dry eye [Unknown]
